FAERS Safety Report 5930803-3 (Version None)
Quarter: 2008Q4

REPORT INFORMATION
  Report Type: 
  Country: None (occurrence: None)
  Receive Date: 20081027
  Receipt Date: 20081015
  Transmission Date: 20090506
  Serious: Yes (Other)
  Sender: FDA-Public Use
  Company Number: US-ROCHE-559560

PATIENT
  Sex: Male

DRUGS (5)
  1. PEG-INTERFERON A-2A (RO 25-8310) [Suspect]
     Dosage: FORM: PRE-FILLED SYRINGE
     Route: 065
     Dates: start: 20080305
  2. RIBAVIRIN [Suspect]
     Dosage: DIVIDED DOSES
     Route: 065
     Dates: start: 20080305
  3. MUSCLE RELAXANT NOS [Concomitant]
  4. ROBAXIN [Concomitant]
     Indication: MUSCLE SPASMS
  5. TRAMADOL HCL [Concomitant]

REACTIONS (13)
  - ASTHENIA [None]
  - CHILLS [None]
  - CONVULSION [None]
  - DEPRESSION [None]
  - DRY MOUTH [None]
  - HOT FLUSH [None]
  - INFLUENZA LIKE ILLNESS [None]
  - LOSS OF CONSCIOUSNESS [None]
  - MOOD SWINGS [None]
  - OROPHARYNGEAL PAIN [None]
  - PAIN [None]
  - THIRST [None]
  - THROAT IRRITATION [None]
